FAERS Safety Report 6449117-0 (Version None)
Quarter: 2009Q4

REPORT INFORMATION
  Report Type: 
  Country: None (occurrence: None)
  Receive Date: 20091120
  Receipt Date: 20091110
  Transmission Date: 20100525
  Serious: Yes (Other)
  Sender: FDA-Public Use
  Company Number: US-ELI_LILLY_AND_COMPANY-US200911002543

PATIENT
  Age: 55 Year
  Sex: Male

DRUGS (2)
  1. GEMCITABINE HCL [Suspect]
     Indication: ADENOCARCINOMA PANCREAS
     Dosage: 750 MG/M2, OTHER
     Route: 042
     Dates: start: 20090923
  2. OTHER PHARMA COMPANY INV DRUG [Suspect]
     Indication: ADENOCARCINOMA PANCREAS
     Dosage: 154 MG/M2, OTHER
     Route: 042
     Dates: start: 20090923

REACTIONS (1)
  - DEEP VEIN THROMBOSIS [None]
